FAERS Safety Report 6711903-7 (Version None)
Quarter: 2010Q2

REPORT INFORMATION
  Report Type: 
  Country: None (occurrence: None)
  Receive Date: 20100505
  Receipt Date: 20100426
  Transmission Date: 20101027
  Serious: Yes (Hospitalization)
  Sender: FDA-Public Use
  Company Number: JP-MERCK-1003USA02986

PATIENT
  Age: 84 Year
  Sex: Male

DRUGS (15)
  1. HYZAAR [Suspect]
     Route: 048
     Dates: start: 20100209, end: 20100309
  2. DOXAZOSIN MESYLATE [Concomitant]
     Route: 048
     Dates: start: 20091202
  3. NORVASC [Concomitant]
     Route: 048
     Dates: start: 20091202
  4. ASPIRIN [Concomitant]
     Route: 048
     Dates: start: 20091202
  5. PLAVIX [Concomitant]
     Route: 048
     Dates: start: 20091202
  6. OMEPRAL [Concomitant]
     Route: 065
     Dates: start: 20091202
  7. PURSENNID [Concomitant]
     Route: 048
     Dates: start: 20091202
  8. LIPITOR [Concomitant]
     Route: 048
     Dates: start: 20091202
  9. ARGAMATE JELLY [Concomitant]
     Route: 048
     Dates: start: 20091202
  10. METHYCOBAL [Concomitant]
     Route: 048
     Dates: start: 20090401
  11. PHENOBARBITAL TAB [Concomitant]
     Route: 048
     Dates: start: 20090401
  12. OPALMON [Concomitant]
     Route: 048
     Dates: start: 20090401
  13. SERMION [Concomitant]
     Route: 048
     Dates: start: 20090401
  14. OKIMINAS [Concomitant]
     Route: 048
     Dates: start: 20090401
  15. KAKKON-TO [Concomitant]
     Route: 048
     Dates: start: 20090401

REACTIONS (1)
  - PNEUMONIA [None]
